FAERS Safety Report 6881360-9 (Version None)
Quarter: 2010Q3

REPORT INFORMATION
  Report Type: 
  Country: None (occurrence: None)
  Receive Date: 20100728
  Receipt Date: 20100728
  Transmission Date: 20110219
  Serious: Yes (Other)
  Sender: FDA-Public Use
  Company Number: None

PATIENT
  Sex: Female
  Weight: 71.6 kg

DRUGS (10)
  1. TEMODAR [Suspect]
     Indication: GLIOBLASTOMA MULTIFORME
     Dosage: 100MG/M2 DAILY ORAL
     Route: 048
     Dates: start: 20100416, end: 20100506
  2. TEMODAR [Suspect]
     Indication: GLIOBLASTOMA MULTIFORME
     Dosage: 100MG/M2 DAILY ORAL
     Route: 048
     Dates: start: 20100514, end: 20100603
  3. XANAX [Concomitant]
  4. EFFEXOR [Concomitant]
  5. LIPITOR [Concomitant]
  6. PROTONIX [Concomitant]
  7. KEPPRA [Concomitant]
  8. ZOFRAN [Concomitant]
  9. COLACE [Concomitant]
  10. BACTRIM [Concomitant]

REACTIONS (4)
  - GAIT DISTURBANCE [None]
  - HEADACHE [None]
  - INCONTINENCE [None]
  - LYMPHOCYTE COUNT ABNORMAL [None]
